FAERS Safety Report 14788413 (Version 2)
Quarter: 2018Q2

REPORT INFORMATION
  Report Type: Spontaneous
  Country: US (occurrence: US)
  Receive Date: 20180423
  Receipt Date: 20180502
  Transmission Date: 20180711
  Serious: Yes (Hospitalization)
  Sender: FDA-Public Use
  Company Number: US-FRESENIUS MEDICAL CARE RENAL THERAPIES GROUP-FMC-1804-000776

PATIENT
  Sex: Male
  Weight: 76 kg

DRUGS (1)
  1. DELFLEX [Suspect]
     Active Substance: CALCIUM CHLORIDE\DEXTROSE\MAGNESIUM CHLORIDE\SODIUM CHLORIDE\SODIUM LACTATE
     Indication: END STAGE RENAL DISEASE
     Dosage: 5 EXCHANGES OF 2400ML
     Route: 033
     Dates: start: 20131209

REACTIONS (4)
  - Myocardial infarction [Recovered/Resolved]
  - Abdominal discomfort [Recovered/Resolved]
  - Fluid overload [Recovered/Resolved]
  - Cardiac arrest [Recovered/Resolved]
